FAERS Safety Report 10136755 (Version 1)
Quarter: 2014Q2

REPORT INFORMATION
  Report Type: Spontaneous
  Country: US (occurrence: None)
  Receive Date: 20140428
  Receipt Date: 20140428
  Transmission Date: 20141212
  Serious: Yes (Hospitalization)
  Sender: FDA-Public Use
  Company Number: None

PATIENT
  Age: 62 Year
  Sex: Female

DRUGS (3)
  1. SOVALDI [Suspect]
     Indication: CHRONIC HEPATITIS C
     Dosage: TAKE 1 TABLET BY MOUTH EVERY DAY
     Route: 048
     Dates: start: 20140210, end: 20140321
  2. RIBAVIRIN 200 MG (RIBAVIRIN) [Concomitant]
  3. PEGASYS PROCLICK 180MCG/0.5ML AUTO INJ [Concomitant]

REACTIONS (2)
  - Dyspnoea [None]
  - Meningitis [None]
